FAERS Safety Report 4308906-9 (Version None)
Quarter: 2004Q1

REPORT INFORMATION
  Report Type: 
  Country: None (occurrence: None)
  Receive Date: 20040302
  Receipt Date: 20031009
  Transmission Date: 20041129
  Serious: Yes (Other)
  Sender: FDA-Public Use
  Company Number: PHEH2003US09330

PATIENT
  Age: 68 Year
  Sex: Male

DRUGS (3)
  1. DEMEROL [Concomitant]
  2. ACIPHEX [Concomitant]
  3. ZOMETA [Suspect]
     Indication: MULTIPLE MYELOMA
     Dosage: 4 MG MONTHLY
     Route: 042
     Dates: start: 20020101, end: 20030401

REACTIONS (6)
  - ABSCESS DRAINAGE [None]
  - FISTULA [None]
  - OSTEOMYELITIS [None]
  - PAIN IN JAW [None]
  - SINUSITIS [None]
  - TOOTHACHE [None]
